FAERS Safety Report 20800019 (Version 1)
Quarter: 2022Q2

REPORT INFORMATION
  Report Type: Spontaneous
  Country: US (occurrence: US)
  Receive Date: 20220509
  Receipt Date: 20220509
  Transmission Date: 20220721
  Serious: No
  Sender: FDA-Public Use
  Company Number: US-AMGEN-USASP2022068517

PATIENT
  Age: 71 Year
  Sex: Female

DRUGS (2)
  1. NPLATE [Suspect]
     Active Substance: ROMIPLOSTIM
     Indication: Immune thrombocytopenia
     Dosage: 250 MICROGRAM, QWK
     Route: 065
     Dates: start: 202111
  2. COVID-19 vaccine [Concomitant]

REACTIONS (1)
  - Platelet count decreased [Unknown]
